FAERS Safety Report 13321816 (Version 1)
Quarter: 2017Q1

REPORT INFORMATION
  Report Type: Spontaneous
  Country: US (occurrence: US)
  Receive Date: 20170310
  Receipt Date: 20170310
  Transmission Date: 20170428
  Serious: No
  Sender: FDA-Public Use
  Company Number: US-ELI_LILLY_AND_COMPANY-US201703002606

PATIENT
  Sex: Female

DRUGS (5)
  1. HUMULIN N [Concomitant]
     Active Substance: INSULIN HUMAN
  2. HUMALOG MIX75/25 [Suspect]
     Active Substance: INSULIN LISPRO
     Indication: TYPE 2 DIABETES MELLITUS
     Dosage: 16 U, EACH MORNING
     Route: 065
     Dates: start: 1995
  3. NOVOLOG [Concomitant]
     Active Substance: INSULIN ASPART
  4. GLUCOTAB [Concomitant]
  5. GLYBURIDE. [Concomitant]
     Active Substance: GLYBURIDE

REACTIONS (3)
  - Blood glucose increased [Unknown]
  - Incorrect drug administration duration [Unknown]
  - Blood glucose decreased [Unknown]

NARRATIVE: CASE EVENT DATE: 201606
